FAERS Safety Report 9372292 (Version 1)
Quarter: 2013Q2

REPORT INFORMATION
  Report Type: Report from Study
  Country: US (occurrence: US)
  Receive Date: 20130627
  Receipt Date: 20130627
  Transmission Date: 20140414
  Serious: Yes (Hospitalization, Other)
  Sender: FDA-Public Use
  Company Number: US-MYLANLABS-2012S1019932

PATIENT
  Age: 16 Year
  Sex: Male
  Weight: 102.06 kg

DRUGS (11)
  1. CLOZAPINE TABLETS [Suspect]
     Indication: SCHIZOAFFECTIVE DISORDER
     Dates: start: 20120829, end: 20121206
  2. CLOZAPINE TABLETS [Suspect]
     Indication: SCHIZOAFFECTIVE DISORDER
     Dates: start: 20120829, end: 20121206
  3. DDAVP [Concomitant]
  4. DEPAKOTE ER [Concomitant]
  5. FLONASE [Concomitant]
  6. FLOVENT [Concomitant]
  7. MIRALAX /00754501/ [Concomitant]
  8. SEROQUEL [Concomitant]
     Dosage: 50MG QAM, 150MG AT NOON, 300MG HS
  9. TENORMIN [Concomitant]
  10. VISTARIL [Concomitant]
  11. LATUDA [Concomitant]

REACTIONS (2)
  - Granulocytopenia [Recovered/Resolved]
  - Leukopenia [Recovered/Resolved]
